FAERS Safety Report 15146847 (Version 3)
Quarter: 2018Q4

REPORT INFORMATION
  Report Type: Spontaneous
  Country: US (occurrence: US)
  Receive Date: 20180716
  Receipt Date: 20181005
  Transmission Date: 20190204
  Serious: No
  Sender: FDA-Public Use
  Company Number: US-JNJFOC-20180704489

PATIENT
  Age: 35 Year
  Sex: Male
  Weight: 62.6 kg

DRUGS (1)
  1. STELARA [Suspect]
     Active Substance: USTEKINUMAB
     Indication: PSORIATIC ARTHROPATHY
     Route: 058
     Dates: start: 2017

REACTIONS (2)
  - Syringe issue [Unknown]
  - Product dose omission [Unknown]

NARRATIVE: CASE EVENT DATE: 20180701
